FAERS Safety Report 7038392-X (Version None)
Quarter: 2010Q4

REPORT INFORMATION
  Report Type: 
  Country: None (occurrence: None)
  Receive Date: 20101011
  Receipt Date: 20100324
  Transmission Date: 20110411
  Serious: Yes (Other)
  Sender: FDA-Public Use
  Company Number: US-PFIZER INC-2010038513

PATIENT
  Sex: Female
  Weight: 45.351 kg

DRUGS (3)
  1. NEURONTIN [Suspect]
     Dosage: UNK
     Route: 048
     Dates: start: 20090101, end: 20100321
  2. REQUIP [Concomitant]
     Dosage: UNK
  3. SINEMET [Concomitant]
     Dosage: UNK

REACTIONS (4)
  - DIARRHOEA [None]
  - INSOMNIA [None]
  - MEMORY IMPAIRMENT [None]
  - MOBILITY DECREASED [None]
